FAERS Safety Report 10342600 (Version 1)
Quarter: 2014Q3

REPORT INFORMATION
  Report Type: Spontaneous
  Country: US (occurrence: US)
  Receive Date: 20140725
  Receipt Date: 20140725
  Transmission Date: 20150326
  Serious: No
  Sender: FDA-Public Use
  Company Number: US-BAYER-2014-109875

PATIENT
  Age: 53 Year
  Sex: Male

DRUGS (1)
  1. CIPRO [Suspect]
     Active Substance: CIPROFLOXACIN HYDROCHLORIDE
     Indication: PROSTATE INFECTION
     Dosage: 500 MG, BID

REACTIONS (9)
  - Asthenia [None]
  - Vision blurred [None]
  - Dizziness [None]
  - Nausea [None]
  - Sight disability [None]
  - Discomfort [None]
  - Somnolence [None]
  - Dry mouth [None]
  - Feeling abnormal [None]

NARRATIVE: CASE EVENT DATE: 20140720
